FAERS Safety Report 9251566 (Version 1)
Quarter: 2013Q1

REPORT INFORMATION
  Report Type: Spontaneous
  Country: US (occurrence: None)
  Receive Date: 20130305
  Receipt Date: 20130305
  Transmission Date: 20140127
  Serious: Yes (Other)
  Sender: FDA-Public Use
  Company Number: 163-21880-12042417

PATIENT
  Age: 81 Year
  Sex: Female
  Weight: 47.63 kg

DRUGS (3)
  1. REVLIMID [Suspect]
     Indication: PLASMA CELL MYELOMA
     Dosage: 10 MG, QD, DAYS 1-28, PO
     Route: 048
     Dates: start: 20120222, end: 20120414
  2. WARFARIN (WARFARIN) (UNKNOWN) [Concomitant]
  3. VALSARTAN (VALSARTAN) (UNKNOWN) [Concomitant]

REACTIONS (1)
  - Dermatitis bullous [None]
